FAERS Safety Report 6079128-9 (Version None)
Quarter: 2009Q1

REPORT INFORMATION
  Report Type: 
  Country: None (occurrence: None)
  Receive Date: 20090216
  Receipt Date: 20090206
  Transmission Date: 20090719
  Serious: Yes (Other)
  Sender: FDA-Public Use
  Company Number: A0753157A

PATIENT
  Age: 54 Year
  Sex: Male

DRUGS (1)
  1. AVANDIA [Suspect]
     Route: 065

REACTIONS (9)
  - CARDIAC FAILURE CONGESTIVE [None]
  - DIABETIC RETINOPATHY [None]
  - HEART INJURY [None]
  - HYPERTENSION [None]
  - MUSCLE SPASMS [None]
  - MYOCARDIAL INFARCTION [None]
  - OEDEMA PERIPHERAL [None]
  - RENAL FAILURE [None]
  - VISION BLURRED [None]
